FAERS Safety Report 5856079-3 (Version None)
Quarter: 2008Q3

REPORT INFORMATION
  Report Type: 
  Country: None (occurrence: None)
  Receive Date: 20080821
  Receipt Date: 20080821
  Transmission Date: 20090109
  Serious: Yes (Hospitalization)
  Sender: FDA-Public Use
  Company Number: None

PATIENT
  Sex: Female
  Weight: 84 kg

DRUGS (2)
  1. CLINORIL [Suspect]
     Dosage: 22800 MG
  2. NOLVADEX [Suspect]
     Dosage: 22800 MG

REACTIONS (9)
  - ABDOMINAL DISTENSION [None]
  - ABDOMINAL MASS [None]
  - ANOREXIA [None]
  - DIALYSIS [None]
  - DYSPNOEA [None]
  - GENERAL PHYSICAL HEALTH DETERIORATION [None]
  - RENAL IMPAIRMENT [None]
  - URINE OUTPUT DECREASED [None]
  - VOMITING [None]
